FAERS Safety Report 8696455 (Version 11)
Quarter: 2014Q2

REPORT INFORMATION
  Report Type: Report from Study
  Country: CA (occurrence: CA)
  Receive Date: 20120801
  Receipt Date: 20140625
  Transmission Date: 20141212
  Serious: Yes (Hospitalization, Other)
  Sender: FDA-Public Use
  Company Number: PHHY2012CA034898

PATIENT
  Age: 78 Year
  Sex: Female

DRUGS (1)
  1. SANDOSTATIN LAR [Suspect]
     Indication: ACROMEGALY
     Dosage: 30 MG, EVERY 3 WEEKS
     Route: 030
     Dates: start: 19921002

REACTIONS (27)
  - Urinary tract infection [Unknown]
  - Aphagia [Unknown]
  - Abdominal pain [Unknown]
  - Vomiting [Unknown]
  - Gout [Recovering/Resolving]
  - Arthralgia [Recovering/Resolving]
  - Joint effusion [Unknown]
  - Blood pressure systolic increased [Unknown]
  - Fall [Unknown]
  - Injection site mass [Unknown]
  - Gait disturbance [Unknown]
  - Blood potassium decreased [Unknown]
  - Pallor [Unknown]
  - Haemoglobin decreased [Unknown]
  - Balance disorder [Unknown]
  - Blood pressure diastolic decreased [Unknown]
  - Arthritis [Recovering/Resolving]
  - General physical health deterioration [Unknown]
  - Chest discomfort [Unknown]
  - Joint injury [Unknown]
  - Contusion [Unknown]
  - Inflammation [Unknown]
  - Joint swelling [Unknown]
  - Dyspnoea [Unknown]
  - Injection site pain [Unknown]
  - Headache [Unknown]
  - Asthenia [Unknown]
